FAERS Safety Report 8499126-5 (Version None)
Quarter: 2012Q2

REPORT INFORMATION
  Report Type: 
  Country: None (occurrence: None)
  Receive Date: 20120405
  Receipt Date: 20100412
  Transmission Date: 20120825
  Serious: Yes (Hospitalization, Other)
  Sender: FDA-Public Use
  Company Number: PHHY2010US15392

PATIENT
  Age: 81 Year
  Sex: Female
  Weight: 123 kg

DRUGS (4)
  1. PERCOCET [Suspect]
  2. RECLAST [Suspect]
  3. XANAX [Concomitant]
  4. PROZAC [Concomitant]

REACTIONS (3)
  - ARTHRALGIA [None]
  - MUSCULOSKELETAL STIFFNESS [None]
  - SWELLING [None]
